FAERS Safety Report 7330538-9 (Version None)
Quarter: 2011Q1

REPORT INFORMATION
  Report Type: 
  Country: None (occurrence: None)
  Receive Date: 20110304
  Receipt Date: 20110223
  Transmission Date: 20110831
  Serious: No
  Sender: FDA-Public Use
  Company Number: US-BIOGENIDEC-2011BI007318

PATIENT
  Age: 69 Year
  Sex: Male

DRUGS (2)
  1. TYSABRI [Suspect]
     Indication: MULTIPLE SCLEROSIS
     Route: 042
     Dates: start: 20081010
  2. AMPYRA [Concomitant]
     Dates: start: 20100407, end: 20100429

REACTIONS (3)
  - APATHY [None]
  - CHEST PAIN [None]
  - PERSONALITY CHANGE [None]
